FAERS Safety Report 25538249 (Version 1)
Quarter: 2025Q3

REPORT INFORMATION
  Report Type: Spontaneous
  Country: US (occurrence: US)
  Receive Date: 20250710
  Receipt Date: 20250710
  Transmission Date: 20251020
  Serious: No
  Sender: PFIZER
  Company Number: US-PFIZER INC-202500139418

PATIENT
  Age: 21 Year
  Sex: Female

DRUGS (3)
  1. LITFULO [Suspect]
     Active Substance: RITLECITINIB TOSYLATE
     Dosage: 50 MG, 1X/DAY
     Route: 048
     Dates: start: 20250618
  2. VITAMIN D3 [Concomitant]
     Active Substance: CHOLECALCIFEROL
  3. FERROUS SULFATE [Concomitant]
     Active Substance: FERROUS SULFATE

REACTIONS (2)
  - Drug ineffective [Unknown]
  - Product dose omission issue [Unknown]
